FAERS Safety Report 18368837 (Version 2)
Quarter: 2020Q4

REPORT INFORMATION
  Report Type: Spontaneous
  Country: KR (occurrence: KR)
  Receive Date: 20201010
  Receipt Date: 20201016
  Transmission Date: 20210114
  Serious: Yes (Hospitalization, Other)
  Sender: FDA-Public Use
  Company Number: KR-TAKEDA-2020TJP021727

PATIENT
  Age: 57 Year
  Sex: Female

DRUGS (2)
  1. CYCLOSPORINE. [Concomitant]
     Active Substance: CYCLOSPORINE
     Dosage: UNK
  2. COLCHICINE. [Suspect]
     Active Substance: COLCHICINE
     Indication: GOUT
     Dosage: UNK
     Route: 065

REACTIONS (9)
  - Liver injury [Unknown]
  - Toxicity to various agents [Unknown]
  - Multiple organ dysfunction syndrome [Unknown]
  - Paraesthesia [Unknown]
  - Renal injury [Unknown]
  - Abdominal pain upper [Unknown]
  - Abdominal discomfort [Unknown]
  - Nausea [Unknown]
  - Vomiting [Unknown]
